FAERS Safety Report 7492845-9 (Version None)
Quarter: 2011Q2

REPORT INFORMATION
  Report Type: 
  Country: None (occurrence: None)
  Receive Date: 20110520
  Receipt Date: 20110506
  Transmission Date: 20111010
  Serious: Yes (Other)
  Sender: FDA-Public Use
  Company Number: IT-RANBAXY-2011RR-41080

PATIENT
  Age: 25 Year
  Sex: Female

DRUGS (1)
  1. NIMESULIDE [Suspect]

REACTIONS (1)
  - ERYTHEMA NODOSUM [None]
